FAERS Safety Report 14034864 (Version 2)
Quarter: 2017Q4

REPORT INFORMATION
  Report Type: Not Available
  Country: None (occurrence: US)
  Receive Date: 20171003
  Receipt Date: 20171009
  Transmission Date: 20180321
  Serious: No
  Sender: FDA-Public Use
  Company Number: US-AKORN-67332

PATIENT

DRUGS (1)
  1. ERYTHROMYCIN OPHTHALMIC OINTMENT, USP [Suspect]
     Active Substance: ERYTHROMYCIN

REACTIONS (1)
  - Rash [None]
